FAERS Safety Report 10273250 (Version 1)
Quarter: 2014Q3

REPORT INFORMATION
  Report Type: Spontaneous
  Country: GB (occurrence: GB)
  Receive Date: 20140702
  Receipt Date: 20140702
  Transmission Date: 20150326
  Serious: Yes (Hospitalization, Other)
  Sender: FDA-Public Use
  Company Number: GB-TEVA-490602ISR

PATIENT
  Age: 87 Year
  Sex: Male

DRUGS (7)
  1. WARFARIN [Suspect]
     Active Substance: WARFARIN
     Indication: PRODUCT USED FOR UNKNOWN INDICATION
     Dosage: DOSAGE FORM: UNSPECIFIED
     Route: 065
  2. DAKTARIN [Suspect]
     Active Substance: MICONAZOLE NITRATE
     Indication: CANDIDA INFECTION
     Dosage: 15 ML DAILY;
     Route: 048
     Dates: start: 20140531
  3. BISOPROLOL [Concomitant]
     Active Substance: BISOPROLOL
     Indication: HEART RATE
     Dosage: DOSAGE FORM: UNSPECIFIED
     Route: 065
  4. DUTASTERIDE [Concomitant]
     Active Substance: DUTASTERIDE
     Indication: BLADDER DISORDER
     Dosage: DOSAGE FORM: UNSPECIFIED
     Route: 065
  5. LISINOPRIL. [Concomitant]
     Active Substance: LISINOPRIL
     Indication: BLOOD PRESSURE
     Dosage: DOSAGE FORM: UNSPECIFIED
     Route: 065
  6. STATINS [Interacting]
     Active Substance: UNSPECIFIED INGREDIENT
     Indication: PRODUCT USED FOR UNKNOWN INDICATION
     Dosage: DOSAGE FORM: UNSPECIFIED
     Route: 065
  7. ASACOL [Concomitant]
     Active Substance: MESALAMINE
     Indication: COLITIS
     Dosage: DOSAGE FORM: UNSPECIFIED
     Route: 065

REACTIONS (5)
  - Peripheral swelling [Unknown]
  - Foreign body [Unknown]
  - International normalised ratio increased [Recovering/Resolving]
  - Drug interaction [Unknown]
  - Erythema [Unknown]

NARRATIVE: CASE EVENT DATE: 2014
